FAERS Safety Report 13757887 (Version 1)
Quarter: 2017Q3

REPORT INFORMATION
  Report Type: Spontaneous
  Country: HU (occurrence: HU)
  Receive Date: 20170717
  Receipt Date: 20170717
  Transmission Date: 20171127
  Serious: Yes (Other)
  Sender: FDA-Public Use
  Company Number: HU-AMGEN-HUNSP2017094707

PATIENT
  Sex: Male
  Weight: 96 kg

DRUGS (3)
  1. VECTIBIX [Suspect]
     Active Substance: PANITUMUMAB
     Dosage: UNK UNK, Q2WK
     Route: 042
     Dates: end: 20170614
  2. PROPRANOLOL [Concomitant]
     Active Substance: PROPRANOLOL HYDROCHLORIDE
     Indication: HYPERTENSION
     Dosage: 20 MG, TID
  3. VECTIBIX [Suspect]
     Active Substance: PANITUMUMAB
     Indication: COLORECTAL CANCER METASTATIC
     Dosage: 4 MG/KG, Q2WK
     Route: 042
     Dates: start: 20150520

REACTIONS (3)
  - Hypomagnesaemia [Recovering/Resolving]
  - Skin toxicity [Recovering/Resolving]
  - Colorectal cancer metastatic [Unknown]
